FAERS Safety Report 17050338 (Version 1)
Quarter: 2019Q4

REPORT INFORMATION
  Report Type: Report from Study
  Country: FI (occurrence: FI)
  Receive Date: 20191119
  Receipt Date: 20191119
  Transmission Date: 20200122
  Serious: Yes (Other)
  Sender: FDA-Public Use
  Company Number: FI-MYLANLABS-2019M1000139

PATIENT
  Age: 30 Year
  Sex: Male

DRUGS (1)
  1. LEPONEX [Suspect]
     Active Substance: CLOZAPINE
     Indication: SCHIZOPHRENIA
     Dosage: 450 MILLIGRAM, QD
     Dates: start: 2017

REACTIONS (5)
  - White blood cell count decreased [Not Recovered/Not Resolved]
  - Pneumonia chlamydial [Unknown]
  - Nasopharyngitis [Unknown]
  - C-reactive protein increased [Unknown]
  - Neutropenia [Not Recovered/Not Resolved]

NARRATIVE: CASE EVENT DATE: 2018
